FAERS Safety Report 8554647-1 (Version None)
Quarter: 2012Q3

REPORT INFORMATION
  Report Type: 
  Country: None (occurrence: None)
  Receive Date: 20120731
  Receipt Date: 20120724
  Transmission Date: 20120928
  Serious: Yes (Death, Other)
  Sender: FDA-Public Use
  Company Number: US-ROCHE-1046494

PATIENT
  Sex: Male

DRUGS (1)
  1. ZELBORAF [Suspect]
     Indication: PRODUCT USED FOR UNKNOWN INDICATION

REACTIONS (11)
  - HEADACHE [None]
  - DEATH [None]
  - NAUSEA [None]
  - MASS [None]
  - ALOPECIA [None]
  - FATIGUE [None]
  - SQUAMOUS CELL CARCINOMA [None]
  - VOMITING [None]
  - WEIGHT DECREASED [None]
  - DYSGEUSIA [None]
  - SUNBURN [None]
